FAERS Safety Report 5482092-4 (Version None)
Quarter: 2007Q4

REPORT INFORMATION
  Report Type: 
  Country: None (occurrence: None)
  Receive Date: 20071011
  Receipt Date: 20071004
  Transmission Date: 20080405
  Serious: Yes (Hospitalization, Other)
  Sender: FDA-Public Use
  Company Number: PHEH2007US12950

PATIENT
  Sex: Male

DRUGS (1)
  1. DIOVAN [Suspect]
     Dates: start: 20061212

REACTIONS (3)
  - BIOPSY SITE UNSPECIFIED NORMAL [None]
  - ENDOSCOPY BILIARY TRACT [None]
  - PANCREATIC DISORDER [None]
